FAERS Safety Report 6071658-9 (Version None)
Quarter: 2009Q1

REPORT INFORMATION
  Report Type: 
  Country: None (occurrence: None)
  Receive Date: 20090209
  Receipt Date: 20090209
  Transmission Date: 20090719
  Serious: Yes (Other)
  Sender: FDA-Public Use
  Company Number: None

PATIENT
  Age: 74 Year
  Sex: Female
  Weight: 67.586 kg

DRUGS (2)
  1. FOSAMAX [Suspect]
     Indication: OSTEOPOROSIS
     Dosage: 1 A WEEK
     Dates: start: 20070401
  2. ACTONEL [Suspect]
     Indication: OSTEOPOROSIS
     Dosage: 1 A WEEK
     Dates: start: 20080801

REACTIONS (3)
  - ORAL DISORDER [None]
  - PAIN IN EXTREMITY [None]
  - URTICARIA [None]
